FAERS Safety Report 18000025 (Version 3)
Quarter: 2021Q2

REPORT INFORMATION
  Report Type: Spontaneous
  Country: US (occurrence: US)
  Receive Date: 20200709
  Receipt Date: 20210624
  Transmission Date: 20210717
  Serious: Yes (Other)
  Sender: FDA-Public Use
  Company Number: US-GILEAD-2020-0479100

PATIENT
  Age: 30 Year
  Sex: Male
  Weight: 68.03 kg

DRUGS (41)
  1. PREDNISONE. [Concomitant]
     Active Substance: PREDNISONE
  2. VANCOMYCIN [Concomitant]
     Active Substance: VANCOMYCIN
  3. HYDROCORTISONE. [Concomitant]
     Active Substance: HYDROCORTISONE
  4. PREGABALIN. [Concomitant]
     Active Substance: PREGABALIN
  5. FAMOTIDINE. [Concomitant]
     Active Substance: FAMOTIDINE
  6. ESOMEPRAZOLE. [Concomitant]
     Active Substance: ESOMEPRAZOLE MAGNESIUM
  7. FLUTICASONE PROPIONATE. [Concomitant]
     Active Substance: FLUTICASONE PROPIONATE
  8. BUPROPION. [Concomitant]
     Active Substance: BUPROPION
  9. FLORASTOR [LACTOBACILLUS ACIDOPHILUS] [Concomitant]
  10. PRAVASTATIN SODIUM. [Concomitant]
     Active Substance: PRAVASTATIN SODIUM
  11. BIKTARVY [Concomitant]
     Active Substance: BICTEGRAVIR SODIUM\EMTRICITABINE\TENOFOVIR ALAFENAMIDE FUMARATE
  12. ALBUTEROL [SALBUTAMOL] [Concomitant]
     Active Substance: ALBUTEROL
  13. BENADRYL [Concomitant]
     Active Substance: DIPHENHYDRAMINE HYDROCHLORIDE
  14. AMOXICILLIN. [Concomitant]
     Active Substance: AMOXICILLIN
  15. DIAZEPAM. [Concomitant]
     Active Substance: DIAZEPAM
  16. SERTRALINE [Concomitant]
     Active Substance: SERTRALINE HYDROCHLORIDE
  17. RANITIDINE. [Concomitant]
     Active Substance: RANITIDINE
  18. PROAIR BRONQUIAL [Concomitant]
  19. TRUVADA [Suspect]
     Active Substance: EMTRICITABINE\TENOFOVIR DISOPROXIL FUMARATE
     Indication: HIV INFECTION
     Dosage: UNK
     Route: 048
     Dates: start: 2011, end: 2016
  20. ACETAMINOPHEN. [Concomitant]
     Active Substance: ACETAMINOPHEN
  21. AMITRIPTYLINE [Concomitant]
     Active Substance: AMITRIPTYLINE
  22. ASPIRIN (E.C.) [Concomitant]
     Active Substance: ASPIRIN
  23. BACTRIM [Concomitant]
     Active Substance: SULFAMETHOXAZOLE\TRIMETHOPRIM
  24. TRIAMCINOLONE [Concomitant]
     Active Substance: TRIAMCINOLONE
  25. INTELENCE [Concomitant]
     Active Substance: ETRAVIRINE
  26. TRIUMEQ [Concomitant]
     Active Substance: ABACAVIR SULFATE\DOLUTEGRAVIR SODIUM\LAMIVUDINE
  27. CLOTRIMAZOLE. [Concomitant]
     Active Substance: CLOTRIMAZOLE
  28. TRUVADA [Suspect]
     Active Substance: EMTRICITABINE\TENOFOVIR DISOPROXIL FUMARATE
     Dosage: UNK
     Route: 048
     Dates: start: 201201, end: 2016
  29. ATRIPLA [Suspect]
     Active Substance: EFAVIRENZ\EMTRICITABINE\TENOFOVIR DISOPROXIL FUMARATE
     Indication: HIV INFECTION
     Dosage: UNK
     Route: 048
     Dates: start: 200803, end: 2010
  30. VITAMIN D [VITAMIN D NOS] [Concomitant]
     Active Substance: VITAMIN D NOS
  31. HUMIRA [Concomitant]
     Active Substance: ADALIMUMAB
  32. CORTISONE [Concomitant]
     Active Substance: CORTISONE
  33. METHOTREXATE. [Concomitant]
     Active Substance: METHOTREXATE
  34. OMEPRAZOLE. [Concomitant]
     Active Substance: OMEPRAZOLE
  35. LORATADINE. [Concomitant]
     Active Substance: LORATADINE
  36. BANOPHEN [Concomitant]
     Active Substance: DIPHENHYDRAMINE HYDROCHLORIDE
  37. CETIRIZINE [Concomitant]
     Active Substance: CETIRIZINE HYDROCHLORIDE
  38. CALCIUM [Concomitant]
     Active Substance: CALCIUM
  39. FORTEO [Concomitant]
     Active Substance: TERIPARATIDE
  40. ALENDRONATE [Concomitant]
     Active Substance: ALENDRONATE SODIUM
  41. PENICILLIN NOS [Concomitant]
     Active Substance: PENICILLIN

REACTIONS (11)
  - Fracture [Unknown]
  - Osteopenia [Not Recovered/Not Resolved]
  - Abnormal dreams [Unknown]
  - Chronic kidney disease [Not Recovered/Not Resolved]
  - Osteoporosis [Not Recovered/Not Resolved]
  - Spinal compression fracture [Not Recovered/Not Resolved]
  - Bone density decreased [Unknown]
  - Emotional distress [Unknown]
  - Bone loss [Unknown]
  - Pain [Unknown]
  - Osteonecrosis [Not Recovered/Not Resolved]

NARRATIVE: CASE EVENT DATE: 201303
